FAERS Safety Report 8246111-4 (Version None)
Quarter: 2012Q1

REPORT INFORMATION
  Report Type: 
  Country: None (occurrence: None)
  Receive Date: 20120330
  Receipt Date: 20120322
  Transmission Date: 20120608
  Serious: Yes (Hospitalization)
  Sender: FDA-Public Use
  Company Number: PHFR2012GB001870

PATIENT
  Sex: Male

DRUGS (2)
  1. CLOZARIL [Suspect]
     Indication: SCHIZOPHRENIA
     Route: 048
     Dates: start: 20020610, end: 20120307
  2. CLOZARIL [Suspect]
     Route: 048
     Dates: start: 20120322

REACTIONS (3)
  - RENAL FAILURE [None]
  - RENAL FUNCTION TEST ABNORMAL [None]
  - LIVER FUNCTION TEST ABNORMAL [None]
